FAERS Safety Report 14035580 (Version 4)
Quarter: 2018Q1

REPORT INFORMATION
  Report Type: Report from Study
  Country: JP (occurrence: JP)
  Receive Date: 20171003
  Receipt Date: 20180209
  Transmission Date: 20180508
  Serious: Yes (Hospitalization)
  Sender: FDA-Public Use
  Company Number: JP-PFIZER INC-2015267788

PATIENT
  Age: 71 Year
  Sex: Male
  Weight: 56 kg

DRUGS (13)
  1. ELTACIN (GENTAMICIN SULFATE) [Suspect]
     Active Substance: GENTAMICIN SULFATE
     Dosage: UNK
     Route: 061
     Dates: start: 20150825
  2. PROGRAF [Concomitant]
     Active Substance: TACROLIMUS\TACROLIMUS ANHYDROUS
     Dosage: UNK
     Dates: start: 20160224
  3. EDIROL [Concomitant]
     Active Substance: ELDECALCITOL
     Dosage: UNK
     Route: 048
     Dates: start: 20150722
  4. SIMPONI [Concomitant]
     Active Substance: GOLIMUMAB
     Dosage: UNK
  5. ISCOTIN [Suspect]
     Active Substance: ISONIAZID
     Indication: PROPHYLAXIS
     Dosage: UNK
     Dates: start: 20150805, end: 20150806
  6. MUCOSTA [Concomitant]
     Active Substance: REBAMIPIDE
     Dosage: UNK
     Route: 048
     Dates: start: 20150807
  7. METHOTREXATE SODIUM. [Suspect]
     Active Substance: METHOTREXATE SODIUM
     Indication: RHEUMATOID ARTHRITIS
     Dosage: 8 MG, WEEKLY
     Route: 048
     Dates: end: 20150806
  8. NESINA [Concomitant]
     Active Substance: ALOGLIPTIN BENZOATE
     Dosage: UNK
     Route: 048
     Dates: start: 20140513
  9. XELJANZ [Suspect]
     Active Substance: TOFACITINIB CITRATE
     Indication: RHEUMATOID ARTHRITIS
     Dosage: 5 MG, DAILY (ONCE DAILY)
     Route: 048
     Dates: start: 20150722, end: 20150806
  10. METHOTREXATE SODIUM. [Suspect]
     Active Substance: METHOTREXATE SODIUM
     Dosage: 8 MG, WEEKLY
     Route: 048
     Dates: start: 20150909, end: 20151110
  11. VICCLOX [Suspect]
     Active Substance: ACYCLOVIR SODIUM
     Indication: PNEUMONIA
     Dosage: UNK
     Route: 042
     Dates: start: 20150825
  12. LOXONIN [Concomitant]
     Active Substance: LOXOPROFEN SODIUM
     Dosage: UNK
     Route: 048
     Dates: start: 20150807
  13. DERMOVATE [Suspect]
     Active Substance: CLOBETASOL
     Dosage: UNK
     Route: 061
     Dates: start: 20150825

REACTIONS (3)
  - Diffuse large B-cell lymphoma [Recovering/Resolving]
  - Herpes zoster [Recovering/Resolving]
  - Pneumonia klebsiella [Recovered/Resolved]

NARRATIVE: CASE EVENT DATE: 20150806
